FAERS Safety Report 9764283 (Version 7)
Quarter: 2015Q3

REPORT INFORMATION
  Report Type: Report from Study
  Country: CA (occurrence: CA)
  Receive Date: 20131217
  Receipt Date: 20150728
  Transmission Date: 20151125
  Serious: Yes (Hospitalization, Other)
  Sender: FDA-Public Use
  Company Number: CA-ROCHE-1318803

PATIENT
  Age: 35 Year
  Sex: Female
  Weight: 69 kg

DRUGS (13)
  1. FLUOROURACIL. [Suspect]
     Active Substance: FLUOROURACIL
     Indication: PRODUCT USED FOR UNKNOWN INDICATION
     Route: 065
     Dates: start: 201209, end: 201211
  2. VIADERM-K.C. [Concomitant]
  3. DOCETAXEL. [Suspect]
     Active Substance: DOCETAXEL
     Route: 042
     Dates: start: 20131028
  4. HERCEPTIN [Suspect]
     Active Substance: TRASTUZUMAB
     Indication: BREAST CANCER
     Route: 065
     Dates: start: 20120622
  5. TYLENOL [Concomitant]
     Active Substance: ACETAMINOPHEN
     Route: 048
     Dates: start: 20131210
  6. DENOSUMAB [Concomitant]
     Active Substance: DENOSUMAB
  7. TAXOL [Suspect]
     Active Substance: PACLITAXEL
     Indication: BREAST CANCER
     Route: 065
     Dates: start: 20120622, end: 201209
  8. EPIRUBICIN [Suspect]
     Active Substance: EPIRUBICIN
     Indication: PRODUCT USED FOR UNKNOWN INDICATION
     Route: 065
     Dates: start: 201209, end: 201211
  9. CYCLOPHOSPHAMIDE. [Suspect]
     Active Substance: CYCLOPHOSPHAMIDE
     Indication: PRODUCT USED FOR UNKNOWN INDICATION
     Route: 065
     Dates: start: 201209, end: 201211
  10. PERJETA [Suspect]
     Active Substance: PERTUZUMAB
     Indication: BREAST CANCER
     Route: 042
     Dates: start: 20131119, end: 20131119
  11. CALTRATE [Concomitant]
     Active Substance: CALCIUM CARBONATE
  12. PERJETA [Suspect]
     Active Substance: PERTUZUMAB
     Route: 042
     Dates: start: 20131210
  13. DOCETAXEL. [Suspect]
     Active Substance: DOCETAXEL
     Indication: BREAST CANCER
     Route: 042
     Dates: start: 20120622, end: 2014

REACTIONS (21)
  - Recurrent cancer [Unknown]
  - Influenza like illness [Unknown]
  - Heart rate increased [Unknown]
  - Drug ineffective [Unknown]
  - Metastases to skin [Unknown]
  - Red cell distribution width increased [Unknown]
  - Oral herpes [Recovered/Resolved]
  - Platelet count decreased [Unknown]
  - Nasopharyngitis [Recovering/Resolving]
  - Malignant neoplasm progression [Unknown]
  - Haemoglobin decreased [Unknown]
  - Mastectomy [Unknown]
  - Cough [Unknown]
  - Infusion related reaction [Unknown]
  - Pharyngitis [Unknown]
  - Bronchitis [Unknown]
  - Blood bilirubin decreased [Unknown]
  - Respiratory rate decreased [Unknown]
  - Lymphocyte count decreased [Unknown]
  - Hyperaesthesia [Recovered/Resolved]
  - Hypotension [Unknown]

NARRATIVE: CASE EVENT DATE: 20121218
